FAERS Safety Report 4490078-1 (Version None)
Quarter: 2004Q4

REPORT INFORMATION
  Report Type: 
  Country: None (occurrence: None)
  Receive Date: 20041022
  Receipt Date: 20041012
  Transmission Date: 20050328
  Serious: Yes (Other)
  Sender: FDA-Public Use
  Company Number: B0347781A

PATIENT
  Age: 78 Year
  Sex: Male

DRUGS (3)
  1. RETROVIR [Suspect]
  2. INDINAVIR SULFATE (FORMULATION UNKNOWN) (INDINAVIR SULFATE) [Suspect]
  3. DIDANOSINE (FORMULATION UNKNOWN) (DIDANOSINE) [Suspect]

REACTIONS (7)
  - ATRIAL FIBRILLATION [None]
  - ATRIOVENTRICULAR BLOCK [None]
  - CARDIAC FAILURE CONGESTIVE [None]
  - COUGH [None]
  - EFFUSION [None]
  - PULMONARY CONGESTION [None]
  - RALES [None]
